FAERS Safety Report 7217036-8 (Version None)
Quarter: 2011Q1

REPORT INFORMATION
  Report Type: 
  Country: None (occurrence: None)
  Receive Date: 20110110
  Receipt Date: 20110104
  Transmission Date: 20110831
  Serious: Yes (Other)
  Sender: FDA-Public Use
  Company Number: JP-JNJFOC-20110101297

PATIENT
  Sex: Male

DRUGS (1)
  1. RISPERDAL [Suspect]
     Indication: PRODUCT USED FOR UNKNOWN INDICATION
     Dosage: 2 MG EACH IN THE MORNING, AFTERNOON AND EVENING
     Route: 048

REACTIONS (3)
  - ANXIETY [None]
  - SCHIZOPHRENIA [None]
  - BEDRIDDEN [None]
